FAERS Safety Report 8971325 (Version 1)
Quarter: 2012Q4

REPORT INFORMATION
  Report Type: 
  Country: DE (occurrence: DE)
  Receive Date: 20121217
  Receipt Date: 20121217
  Transmission Date: 20130627
  Serious: Yes (Hospitalization, Other)
  Sender: FDA-Public Use
  Company Number: PHHY2012DE115417

PATIENT
  Sex: Female

DRUGS (1)
  1. TEGRETAL [Suspect]
     Route: 048

REACTIONS (5)
  - Wrong drug administered [Recovered/Resolved]
  - Depression [Recovered/Resolved]
  - Dysphagia [Recovered/Resolved]
  - Apathy [Recovered/Resolved]
  - Gamma-glutamyltransferase increased [Recovered/Resolved]
